FAERS Safety Report 5261679-8 (Version None)
Quarter: 2007Q1

REPORT INFORMATION
  Report Type: 
  Country: None (occurrence: None)
  Receive Date: 20061218
  Receipt Date: 20060906
  Transmission Date: 20070707
  Serious: No
  Sender: FDA-Public Use
  Company Number: US200609001185

PATIENT
  Sex: Male

DRUGS (2)
  1. CIALIS [Suspect]
     Indication: OFF LABEL USE
     Dosage: 20 MG,
     Dates: start: 20060902
  2. HYTRIN [Concomitant]

REACTIONS (2)
  - OEDEMA PERIPHERAL [None]
  - WEIGHT INCREASED [None]
